FAERS Safety Report 7544626-5 (Version None)
Quarter: 2011Q2

REPORT INFORMATION
  Report Type: 
  Country: None (occurrence: None)
  Receive Date: 20110614
  Receipt Date: 20110602
  Transmission Date: 20111010
  Serious: No
  Sender: FDA-Public Use
  Company Number: US-BIOGENIDEC-2010BI024888

PATIENT
  Sex: Female

DRUGS (2)
  1. TYSABRI [Suspect]
     Indication: MULTIPLE SCLEROSIS
     Route: 042
     Dates: start: 20061106
  2. AVONEX [Concomitant]
     Indication: MULTIPLE SCLEROSIS
     Route: 030
     Dates: start: 20061101

REACTIONS (26)
  - COGNITIVE DISORDER [None]
  - DEPRESSION [None]
  - FALL [None]
  - MEMORY IMPAIRMENT [None]
  - HAEMOPTYSIS [None]
  - COUGH [None]
  - DECREASED APPETITE [None]
  - MULTIPLE SCLEROSIS [None]
  - INFUSION RELATED REACTION [None]
  - URINARY INCONTINENCE [None]
  - WHEEZING [None]
  - URINARY TRACT INFECTION [None]
  - VISUAL ACUITY REDUCED [None]
  - DRUG HYPERSENSITIVITY [None]
  - DENTAL CARIES [None]
  - VASCULITIS [None]
  - TENSION HEADACHE [None]
  - TOOTH ABSCESS [None]
  - HERPES ZOSTER [None]
  - JOINT INJURY [None]
  - BALANCE DISORDER [None]
  - INSOMNIA [None]
  - BRONCHITIS [None]
  - MUSCULAR WEAKNESS [None]
  - FATIGUE [None]
  - HEADACHE [None]
